FAERS Safety Report 8010883-4 (Version None)
Quarter: 2011Q4

REPORT INFORMATION
  Report Type: 
  Country: None (occurrence: None)
  Receive Date: 20111228
  Receipt Date: 20111215
  Transmission Date: 20120403
  Serious: Yes (Hospitalization)
  Sender: FDA-Public Use
  Company Number: FR-ROCHE-1001551

PATIENT
  Age: 90 Year
  Sex: Male
  Weight: 70 kg

DRUGS (11)
  1. CLONAZEPAM [Suspect]
     Indication: RESTLESS LEGS SYNDROME
     Dosage: FORM REPORTED AS: FLASK.
     Route: 048
     Dates: start: 20110906
  2. TRIVASTAL [Concomitant]
     Route: 048
     Dates: start: 19950101, end: 20110101
  3. CLONAZEPAM [Suspect]
     Indication: ANXIETY
  4. HYZAAR [Concomitant]
     Indication: HYPERTENSION
     Dosage: 1 DF
     Dates: start: 19970101, end: 20110101
  5. CLONAZEPAM [Suspect]
     Indication: INSOMNIA
  6. CRESTOR [Concomitant]
     Indication: HYPERTENSION
     Route: 048
     Dates: start: 20070101, end: 20110101
  7. ASPIRIN [Concomitant]
     Indication: ARTERIAL DISORDER
     Route: 048
     Dates: start: 20080101
  8. ASPIRIN [Concomitant]
     Indication: CAROTID ARTERIOSCLEROSIS
  9. TRANSULOSE [Concomitant]
  10. DAFLON (FRANCE) [Concomitant]
  11. ACETAMINOPHEN [Concomitant]

REACTIONS (3)
  - FALL [None]
  - URINARY RETENTION [None]
  - RHABDOMYOLYSIS [None]
